FAERS Safety Report 8503427-1 (Version None)
Quarter: 2012Q3

REPORT INFORMATION
  Report Type: 
  Country: None (occurrence: None)
  Receive Date: 20120711
  Receipt Date: 20120709
  Transmission Date: 20120928
  Serious: No
  Sender: FDA-Public Use
  Company Number: US-B.I. PHARMACEUTICALS,INC./RIDGEFIELD-2012-BP-15313BP

PATIENT
  Sex: Female

DRUGS (11)
  1. LEVOTHYROXINE SODIUM [Concomitant]
     Indication: THYROID DISORDER
     Dosage: 125 MG
     Route: 048
     Dates: start: 20110901
  2. MIRTAZAPINE [Concomitant]
     Indication: ANXIETY
  3. MIRTAZAPINE [Concomitant]
     Indication: DEPRESSION
     Dosage: 15 MG
     Route: 048
     Dates: start: 20100301
  4. KLOR-CON [Concomitant]
     Indication: SUPPLEMENTATION THERAPY
     Dates: start: 20110601
  5. RESTASIS [Concomitant]
     Indication: DRY EYE
     Dates: start: 20090101
  6. GUANFACINE [Concomitant]
     Indication: BLOOD PRESSURE
     Dosage: 1 MG
     Route: 048
     Dates: start: 20110701
  7. DILTIAZEM HYDROCHOLORIDE [Concomitant]
     Indication: ATRIAL FIBRILLATION
     Dosage: 240 MG
     Route: 048
     Dates: start: 20110701
  8. PRADAXA [Suspect]
     Indication: ATRIAL FIBRILLATION
     Dosage: 75 MG
     Route: 048
     Dates: start: 20110704, end: 20120501
  9. CALCIUM CARBONATE [Concomitant]
     Indication: BLOOD CALCIUM DECREASED
     Dosage: 1200 MG
     Route: 048
     Dates: start: 19870101
  10. METOPROLOL SUCCINATE [Concomitant]
     Indication: ATRIAL FIBRILLATION
     Dosage: 50 MG
     Route: 048
     Dates: start: 20110701
  11. TRIAMTERENE [Concomitant]
     Indication: OEDEMA
     Dosage: 25 MG
     Route: 048
     Dates: start: 19870101

REACTIONS (2)
  - PALPITATIONS [None]
  - HYPOTHYROIDISM [None]
